FAERS Safety Report 22539742 (Version 2)
Quarter: 2023Q2

REPORT INFORMATION
  Report Type: Spontaneous
  Country: CN (occurrence: CN)
  Receive Date: 20230609
  Receipt Date: 20230621
  Transmission Date: 20230722
  Serious: Yes (Other)
  Sender: FDA-Public Use
  Company Number: CN-SA-2023SA173290

PATIENT
  Age: 50 Year
  Sex: Male
  Weight: 53 kg

DRUGS (2)
  1. OXALIPLATIN [Suspect]
     Active Substance: OXALIPLATIN
     Indication: Rectal adenocarcinoma
     Dosage: 130 MG/M2, QCY (DAY 1)
     Route: 042
     Dates: start: 2020
  2. CAPECITABINE [Suspect]
     Active Substance: CAPECITABINE
     Indication: Rectal adenocarcinoma
     Dosage: (EVENING OF DAY 1 TO DAY 15 MORNING)
     Route: 048
     Dates: start: 2020

REACTIONS (6)
  - Hepatic cirrhosis [Recovering/Resolving]
  - Abdominal distension [Recovering/Resolving]
  - Ascites [Recovering/Resolving]
  - Oesophageal varices haemorrhage [Unknown]
  - Gastritis erosive [Unknown]
  - Splenomegaly [Unknown]
